FAERS Safety Report 17602233 (Version 1)
Quarter: 2020Q1

REPORT INFORMATION
  Report Type: Spontaneous
  Country: FR (occurrence: FR)
  Receive Date: 20200331
  Receipt Date: 20200331
  Transmission Date: 20200409
  Serious: Yes (Death, Other)
  Sender: FDA-Public Use
  Company Number: FR-AMGEN-FRASP2020050007

PATIENT
  Age: 62 Year
  Sex: Female
  Weight: 95 kg

DRUGS (12)
  1. BLINCYTO [Suspect]
     Active Substance: BLINATUMOMAB
     Indication: ACUTE LEUKAEMIA
     Dosage: UNK
     Route: 041
     Dates: start: 20190318, end: 20190521
  2. KIDROLASE [Interacting]
     Active Substance: ASPARAGINASE
     Indication: ACUTE LYMPHOCYTIC LEUKAEMIA
     Route: 041
     Dates: start: 20190111, end: 20190111
  3. CELLCEPT [Interacting]
     Active Substance: MYCOPHENOLATE MOFETIL\MYCOPHENOLATE MOFETIL HYDROCHLORIDE
     Indication: PROPHYLAXIS AGAINST TRANSPLANT REJECTION
     Dosage: UNK
     Route: 041
     Dates: start: 20190527, end: 20190610
  4. METHYLPREDNISOLONE MYLAN [METHYLPREDNISOLONE HEMISUCCINATE] [Interacting]
     Active Substance: METHYLPREDNISOLONE HEMISUCCINATE
     Indication: ACUTE LYMPHOCYTIC LEUKAEMIA
     Dosage: UNK
     Route: 037
     Dates: start: 20181111, end: 20190510
  5. NEORAL [Interacting]
     Active Substance: CYCLOSPORINE
     Indication: PROPHYLAXIS AGAINST TRANSPLANT REJECTION
     Dosage: UNK
     Route: 048
     Dates: start: 20190610, end: 20190702
  6. VINCRISTINE [Interacting]
     Active Substance: VINCRISTINE
     Indication: ACUTE LYMPHOCYTIC LEUKAEMIA
     Dosage: UNK
     Route: 041
     Dates: start: 20181112, end: 20190311
  7. METHOTREXATE. [Interacting]
     Active Substance: METHOTREXATE
     Indication: ACUTE LYMPHOCYTIC LEUKAEMIA
     Dosage: UNK
     Route: 037
     Dates: start: 20181108, end: 20190510
  8. CYTARABINE. [Interacting]
     Active Substance: CYTARABINE
     Indication: ACUTE LYMPHOCYTIC LEUKAEMIA
     Dosage: UNK
     Route: 037
     Dates: start: 20181111, end: 20190510
  9. SANDIMMUN [Interacting]
     Active Substance: CYCLOSPORINE
     Indication: PROPHYLAXIS AGAINST TRANSPLANT REJECTION
     Dosage: UNK
     Route: 041
     Dates: start: 20190527, end: 20190610
  10. CELLCEPT [Interacting]
     Active Substance: MYCOPHENOLATE MOFETIL\MYCOPHENOLATE MOFETIL HYDROCHLORIDE
     Dosage: 2 GRAM, QD
     Route: 048
     Dates: start: 20190610, end: 20190702
  11. FLUDARABINE TEVA [Interacting]
     Active Substance: FLUDARABINE PHOSPHATE
     Indication: ACUTE LYMPHOCYTIC LEUKAEMIA
     Dosage: 60 MILLIGRAM, QD
     Route: 041
     Dates: start: 20190524, end: 20190527
  12. METHOTREXATE. [Interacting]
     Active Substance: METHOTREXATE
     Dosage: 2 GRAM
     Route: 041
     Dates: start: 20190110, end: 20190110

REACTIONS (7)
  - Mutism [Fatal]
  - Neuralgia [Fatal]
  - Meningitis aseptic [Fatal]
  - Leukoencephalopathy [Fatal]
  - Somnolence [Fatal]
  - Hypoaesthesia [Fatal]
  - Quadriplegia [Fatal]

NARRATIVE: CASE EVENT DATE: 20190626
